FAERS Safety Report 6586314-8 (Version None)
Quarter: 2010Q1

REPORT INFORMATION
  Report Type: 
  Country: None (occurrence: None)
  Receive Date: 20100216
  Receipt Date: 20100216
  Transmission Date: 20100710
  Serious: Yes (Hospitalization, Disabling, Other)
  Sender: FDA-Public Use
  Company Number: None

PATIENT
  Age: 21 Year
  Sex: Female
  Weight: 63.7 kg

DRUGS (2)
  1. CIPROFLOXACIN [Suspect]
     Indication: ABSCESS
     Dosage: 500 MG #20 QD ORALLY 12/8 UNTIL 12/20 QD THEN INCREASE TO BID UNTIL 12/24 WHEN GONE
     Route: 048
     Dates: start: 20091208, end: 20091220
  2. CIPROFLOXACIN [Suspect]
     Indication: ABSCESS
     Dosage: 500 MG #20 QD ORALLY 12/8 UNTIL 12/20 QD THEN INCREASE TO BID UNTIL 12/24 WHEN GONE
     Route: 048
     Dates: start: 20091224

REACTIONS (12)
  - ACUTE PSYCHOSIS [None]
  - BIPOLAR I DISORDER [None]
  - CATATONIA [None]
  - CONFUSIONAL STATE [None]
  - DEPRESSION [None]
  - FATIGUE [None]
  - FEELING COLD [None]
  - HYPOPHAGIA [None]
  - PANIC ATTACK [None]
  - PARANOIA [None]
  - REFUSAL OF TREATMENT BY PATIENT [None]
  - SUICIDAL IDEATION [None]
